FAERS Safety Report 19854440 (Version 4)
Quarter: 2023Q2

REPORT INFORMATION
  Report Type: Report from Study
  Country: US (occurrence: US)
  Receive Date: 20210920
  Receipt Date: 20230614
  Transmission Date: 20230722
  Serious: Yes (Hospitalization, Other)
  Sender: FDA-Public Use
  Company Number: US-SUN PHARMACEUTICAL INDUSTRIES LTD-2021R1-311076

PATIENT
  Age: 63 Year
  Sex: Female
  Weight: 82.993 kg

DRUGS (2)
  1. TILDRAKIZUMAB [Suspect]
     Active Substance: TILDRAKIZUMAB
     Indication: Psoriasis
     Dosage: 100 MILLIGRAM, 1 IN 12 WEEKS
     Route: 058
     Dates: start: 20210309
  2. TRAMADOL [Concomitant]
     Active Substance: TRAMADOL
     Indication: Product used for unknown indication
     Route: 065

REACTIONS (3)
  - Road traffic accident [Unknown]
  - Pityriasis rosea [Unknown]
  - Abdominal infection [Unknown]

NARRATIVE: CASE EVENT DATE: 20210601
